FAERS Safety Report 6731579-2 (Version None)
Quarter: 2010Q2

REPORT INFORMATION
  Report Type: 
  Country: None (occurrence: None)
  Receive Date: 20100519
  Receipt Date: 20091013
  Transmission Date: 20101027
  Serious: Yes (Death, Hospitalization)
  Sender: FDA-Public Use
  Company Number: CA-NOVOPROD-292061

PATIENT

DRUGS (9)
  1. INSULIN DETEMIR 2.4 MOL/L [Suspect]
     Indication: TYPE 2 DIABETES MELLITUS
     Dosage: 14 IU, QD
     Route: 058
     Dates: start: 20090511, end: 20090817
  2. JANUVIA [Concomitant]
     Dosage: 100 MG, QD
     Route: 048
     Dates: start: 20080131, end: 20090817
  3. METFORMIN HYDROCHLORIDE [Concomitant]
     Dosage: 3000 MG, QD
     Route: 048
     Dates: start: 20061023, end: 20090817
  4. MICARDIS HCT [Concomitant]
     Dosage: 80 MG, QD
     Route: 048
     Dates: start: 20030919, end: 20090817
  5. PROSCAR [Concomitant]
     Dosage: 5 MG, QD
     Route: 048
     Dates: start: 20090218, end: 20090817
  6. FUROSEMIDE [Concomitant]
     Dosage: 40 MG, QD
     Route: 048
     Dates: start: 20071221, end: 20090817
  7. EZETROL [Concomitant]
     Dosage: 10 MG, QD
     Route: 048
     Dates: start: 20071214, end: 20090817
  8. DIAMICRON [Concomitant]
     Dosage: 120 MG, QD
     Route: 048
     Dates: start: 20080926, end: 20090817
  9. CIPRO [Concomitant]
     Dosage: 250 MG, UNK
     Dates: start: 20090809

REACTIONS (4)
  - CARDIAC ARREST [None]
  - CHOLECYSTITIS [None]
  - MYOCARDIAL INFARCTION [None]
  - UROSEPSIS [None]
